FAERS Safety Report 10190462 (Version 1)
Quarter: 2014Q2

REPORT INFORMATION
  Report Type: Spontaneous
  Country: US (occurrence: US)
  Receive Date: 20140522
  Receipt Date: 20140522
  Transmission Date: 20141212
  Serious: Yes (Other)
  Sender: FDA-Public Use
  Company Number: US-SANOFI-AVENTIS-2013SA055171

PATIENT
  Sex: Female

DRUGS (4)
  1. ELOXATIN [Suspect]
  2. 5-FU [Suspect]
  3. LEUCOVORIN [Suspect]
  4. AVASTIN [Concomitant]

REACTIONS (1)
  - Neuropathy peripheral [Unknown]
